FAERS Safety Report 22794474 (Version 2)
Quarter: 2023Q4

REPORT INFORMATION
  Report Type: Spontaneous
  Country: US (occurrence: US)
  Receive Date: 20230807
  Receipt Date: 20231013
  Transmission Date: 20240109
  Serious: No
  Sender: FDA-Public Use
  Company Number: US-SA-SAC20230801000046

PATIENT
  Age: 49 Year
  Sex: Female

DRUGS (2)
  1. DUPIXENT [Suspect]
     Active Substance: DUPILUMAB
     Indication: Neurodermatitis
     Dosage: 600 MG, 1X
     Route: 058
     Dates: start: 20230707, end: 20230707
  2. DUPIXENT [Suspect]
     Active Substance: DUPILUMAB
     Indication: Eczema
     Dosage: 300 MG, QOW
     Route: 058
     Dates: start: 20230721

REACTIONS (10)
  - Muscle spasms [Unknown]
  - Menstruation delayed [Unknown]
  - Oligomenorrhoea [Unknown]
  - Heavy menstrual bleeding [Recovered/Resolved]
  - Menstrual disorder [Recovered/Resolved]
  - Eczema [Unknown]
  - Arthralgia [Unknown]
  - Injection site bruising [Unknown]
  - Rash [Unknown]
  - Inappropriate schedule of product administration [Unknown]

NARRATIVE: CASE EVENT DATE: 20230101
